FAERS Safety Report 7214310-6 (Version None)
Quarter: 2011Q1

REPORT INFORMATION
  Report Type: 
  Country: None (occurrence: None)
  Receive Date: 20110107
  Receipt Date: 20101228
  Transmission Date: 20110831
  Serious: Yes (Hospitalization)
  Sender: FDA-Public Use
  Company Number: FR-SANOFI-AVENTIS-2010SA078300

PATIENT
  Age: 87 Year
  Sex: Male

DRUGS (2)
  1. ELOXATIN [Suspect]
     Route: 042
     Dates: start: 20100826, end: 20101118
  2. TOMUDEX [Suspect]
     Route: 042
     Dates: start: 20100826, end: 20101118

REACTIONS (1)
  - CYTOLYTIC HEPATITIS [None]
